FAERS Safety Report 4614457-4 (Version None)
Quarter: 2005Q2

REPORT INFORMATION
  Report Type: 
  Country: None (occurrence: None)
  Receive Date: 20050307
  Receipt Date: 20050112
  Transmission Date: 20051028
  Serious: No
  Sender: FDA-Public Use
  Company Number: USA050188138

PATIENT
  Age: 46 Year
  Sex: Male

DRUGS (4)
  1. ALIMTA [Suspect]
     Indication: LUNG NEOPLASM MALIGNANT
     Dosage: 1000 MG
     Dates: start: 20041220
  2. CISPLATIN [Concomitant]
  3. VITAMIN B-12 [Concomitant]
  4. DECADRON [Concomitant]

REACTIONS (1)
  - VOMITING [None]
